FAERS Safety Report 7305953-X (Version None)
Quarter: 2011Q1

REPORT INFORMATION
  Report Type: 
  Country: None (occurrence: None)
  Receive Date: 20110222
  Receipt Date: 20110215
  Transmission Date: 20110831
  Serious: Yes (Other)
  Sender: FDA-Public Use
  Company Number: FR-BRISTOL-MYERS SQUIBB COMPANY-15549587

PATIENT
  Age: 60 Year
  Sex: Male

DRUGS (4)
  1. ATAZANAVIR [Suspect]
     Indication: HIV INFECTION
     Dates: start: 20050501, end: 20090601
  2. LAMIVUDINE [Suspect]
     Indication: HIV INFECTION
     Dates: start: 20040301
  3. ABACAVIR [Suspect]
     Indication: HIV INFECTION
     Dates: start: 20061001
  4. RITONAVIR [Suspect]
     Indication: HIV INFECTION
     Dates: start: 20040301

REACTIONS (1)
  - TUBULOINTERSTITIAL NEPHRITIS [None]
